FAERS Safety Report 23084792 (Version 1)
Quarter: 2023Q4

REPORT INFORMATION
  Report Type: Spontaneous
  Country: US (occurrence: US)
  Receive Date: 20231019
  Receipt Date: 20231019
  Transmission Date: 20240109
  Serious: Yes (Hospitalization)
  Sender: FDA-Public Use
  Company Number: US-PFIZER INC-PV202300172081

PATIENT
  Age: 61 Year
  Sex: Female

DRUGS (1)
  1. IBRANCE [Suspect]
     Active Substance: PALBOCICLIB
     Dosage: FOR 21 DAYS, 7 DAYS OFF
     Route: 048
     Dates: start: 20200907, end: 20231016

REACTIONS (1)
  - Thyroid operation [Recovering/Resolving]

NARRATIVE: CASE EVENT DATE: 20230101
